FAERS Safety Report 17273052 (Version 1)
Quarter: 2020Q1

REPORT INFORMATION
  Report Type: Spontaneous
  Country: DE (occurrence: DE)
  Receive Date: 20200115
  Receipt Date: 20200115
  Transmission Date: 20200409
  Serious: Yes (Hospitalization, Other)
  Sender: FDA-Public Use
  Company Number: DE-ASTRAZENECA-2020SE03734

PATIENT
  Age: 44 Year
  Sex: Male

DRUGS (3)
  1. TICAGRELOR. [Suspect]
     Active Substance: TICAGRELOR
     Route: 048
  2. HEPARIN [Concomitant]
     Active Substance: HEPARIN SODIUM
  3. ACETYLSALICYLIC ACID [Concomitant]
     Active Substance: ASPIRIN

REACTIONS (3)
  - Drug ineffective [Unknown]
  - Bradycardia [Unknown]
  - Cold sweat [Unknown]
